FAERS Safety Report 10520019 (Version 2)
Quarter: 2015Q1

REPORT INFORMATION
  Report Type: Report from Study
  Country: JP (occurrence: JP)
  Receive Date: 20141015
  Receipt Date: 20150205
  Transmission Date: 20150720
  Serious: Yes (Life-Threatening)
  Sender: FDA-Public Use
  Company Number: JP-BAYER-2014-149032

PATIENT
  Age: 77 Year
  Sex: Female
  Weight: 57 kg

DRUGS (4)
  1. NEXAVAR [Suspect]
     Active Substance: SORAFENIB
     Indication: PAPILLARY THYROID CANCER
     Dosage: DAILY DOSE 800 MG
     Route: 048
     Dates: start: 20140805, end: 20140819
  2. WHITE PETROLEUM [Concomitant]
     Active Substance: PETROLATUM
     Dosage: UNK
     Route: 061
     Dates: start: 20140805, end: 20140911
  3. THYRADIN [Concomitant]
     Active Substance: LEVOTHYROXINE
     Indication: PAPILLARY THYROID CANCER
     Dosage: DAILY DOSE 125 ?G
     Route: 048
     Dates: start: 20090218
  4. NEXAVAR [Suspect]
     Active Substance: SORAFENIB
     Indication: PAPILLARY THYROID CANCER
     Dosage: DAILY DOSE 600 MG
     Route: 048
     Dates: start: 20140826, end: 20140827

REACTIONS (2)
  - Stevens-Johnson syndrome [Not Recovered/Not Resolved]
  - Palmar-plantar erythrodysaesthesia syndrome [Recovered/Resolved]

NARRATIVE: CASE EVENT DATE: 20140815
